FAERS Safety Report 4765557-X (Version None)
Quarter: 2005Q3

REPORT INFORMATION
  Report Type: 
  Country: None (occurrence: None)
  Receive Date: 20050906
  Receipt Date: 20050826
  Transmission Date: 20060218
  Serious: Yes (Hospitalization)
  Sender: FDA-Public Use
  Company Number: 2005-08-1814

PATIENT
  Sex: Female

DRUGS (2)
  1. CLARITIN ALLERGY + SINUS EXTRA STRENGTH TABLETS [Suspect]
     Indication: RHINORRHOEA
     Dosage: 1 TAB ORAL
     Route: 048
     Dates: start: 20050817, end: 20050817
  2. CLARITIN ALLERGY + SINUS EXTRA STRENGTH TABLETS [Suspect]
     Indication: SNEEZING
     Dosage: 1 TAB ORAL
     Route: 048
     Dates: start: 20050817, end: 20050817

REACTIONS (1)
  - PALPITATIONS [None]
